FAERS Safety Report 14495165 (Version 1)
Quarter: 2018Q1

REPORT INFORMATION
  Report Type: Report from Study
  Country: US (occurrence: US)
  Receive Date: 20180206
  Receipt Date: 20180206
  Transmission Date: 20180509
  Serious: Yes (Death)
  Sender: FDA-Public Use
  Company Number: US-ACTELION-A-NJ2018-166757

PATIENT
  Age: 67 Year
  Sex: Female

DRUGS (5)
  1. ADCIRCA [Concomitant]
     Active Substance: TADALAFIL
  2. SULFASALAZINE. [Concomitant]
     Active Substance: SULFASALAZINE
  3. GABAPENTIN. [Concomitant]
     Active Substance: GABAPENTIN
  4. FUROSEMIDE. [Concomitant]
     Active Substance: FUROSEMIDE
  5. OPSUMIT [Suspect]
     Active Substance: MACITENTAN
     Indication: PULMONARY ARTERIAL HYPERTENSION
     Dosage: 10 MG, QD
     Route: 048

REACTIONS (1)
  - Pulmonary arterial hypertension [Fatal]
